FAERS Safety Report 16478422 (Version 1)
Quarter: 2019Q2

REPORT INFORMATION
  Report Type: Spontaneous
  Country: US (occurrence: US)
  Receive Date: 20190626
  Receipt Date: 20190626
  Transmission Date: 20190711
  Serious: No
  Sender: FDA-Public Use
  Company Number: US-ASTRAZENECA-2019SE91164

PATIENT
  Sex: Female

DRUGS (2)
  1. SYMBICORT [Suspect]
     Active Substance: BUDESONIDE\FORMOTEROL FUMARATE DIHYDRATE
     Dosage: UNKNOWN DOSE OF FREQUENCY UNKNOWN
     Route: 055
     Dates: start: 2011, end: 2018
  2. DALIRESP [Suspect]
     Active Substance: ROFLUMILAST
     Dosage: UNKNOWN DOSE OF FREQUENCY
     Route: 065
     Dates: start: 201903

REACTIONS (5)
  - Cough [Unknown]
  - Sinusitis [Unknown]
  - Polyp [Unknown]
  - Eosinophil count increased [Unknown]
  - Asthma [Unknown]
